FAERS Safety Report 17881345 (Version 1)
Quarter: 2020Q2

REPORT INFORMATION
  Report Type: Spontaneous
  Country: CN (occurrence: CN)
  Receive Date: 20200610
  Receipt Date: 20200610
  Transmission Date: 20200714
  Serious: Yes (Hospitalization, Other)
  Sender: FDA-Public Use
  Company Number: CN-BAYER-2020-110629

PATIENT
  Age: 54 Year
  Sex: Female

DRUGS (3)
  1. CAMRELIZUMAB [Concomitant]
     Active Substance: CAMRELIZUMAB
     Indication: COLON CANCER
     Dosage: 200 MG
     Route: 041
     Dates: start: 20200518, end: 20200518
  2. CAMRELIZUMAB [Concomitant]
     Active Substance: CAMRELIZUMAB
     Indication: COLON CANCER
     Dosage: 200 MG
     Dates: start: 20200423, end: 20200423
  3. STIVARGA [Suspect]
     Active Substance: REGORAFENIB
     Indication: COLON CANCER
     Dosage: 80 MG, QD
     Route: 048
     Dates: start: 20200423, end: 20200502

REACTIONS (6)
  - White blood cell count decreased [Recovering/Resolving]
  - Platelet count decreased [Recovering/Resolving]
  - Pyrexia [Recovering/Resolving]
  - Metastases to pelvis [None]
  - Rash [Recovering/Resolving]
  - Off label use [None]

NARRATIVE: CASE EVENT DATE: 20200423
